FAERS Safety Report 19859562 (Version 1)
Quarter: 2021Q3

REPORT INFORMATION
  Report Type: Spontaneous
  Country: US (occurrence: US)
  Receive Date: 20210920
  Receipt Date: 20210920
  Transmission Date: 20211014
  Serious: No
  Sender: FDA-Public Use
  Company Number: None

PATIENT
  Age: 62 Year
  Sex: Female

DRUGS (14)
  1. CLOBETASOL [Concomitant]
     Active Substance: CLOBETASOL
  2. CETIRIZINE [Concomitant]
     Active Substance: CETIRIZINE HYDROCHLORIDE
  3. FUROSEMIDE. [Concomitant]
     Active Substance: FUROSEMIDE
  4. AMBRISENTAN TABLETS [Suspect]
     Active Substance: AMBRISENTAN
     Indication: PULMONARY HYPERTENSION
     Route: 048
     Dates: start: 20160119, end: 20210525
  5. LOSARTAN. [Concomitant]
     Active Substance: LOSARTAN
  6. METFORMIN [Concomitant]
     Active Substance: METFORMIN HYDROCHLORIDE
  7. FLUOCINONIDE TOP CR [Concomitant]
  8. DERMA?SMOOTHE/FS [Concomitant]
     Active Substance: FLUOCINOLONE ACETONIDE
  9. TRIAMCINOLONE TOP LOTION [Concomitant]
  10. ROSUVASTATIN. [Concomitant]
     Active Substance: ROSUVASTATIN
  11. GLIPIZIDE. [Concomitant]
     Active Substance: GLIPIZIDE
  12. WARFARIN [Concomitant]
     Active Substance: WARFARIN
  13. DILTIAZEM. [Concomitant]
     Active Substance: DILTIAZEM
  14. FLONASE [Concomitant]
     Active Substance: FLUTICASONE PROPIONATE

REACTIONS (1)
  - Drug ineffective [None]

NARRATIVE: CASE EVENT DATE: 20210920
